FAERS Safety Report 10258559 (Version 8)
Quarter: 2016Q2

REPORT INFORMATION
  Report Type: Report from Study
  Country: BR (occurrence: BR)
  Receive Date: 20140625
  Receipt Date: 20160419
  Transmission Date: 20160815
  Serious: Yes (Other)
  Sender: FDA-Public Use
  Company Number: PHHY2014BR077931

PATIENT
  Age: 59 Year
  Sex: Male
  Weight: 76 kg

DRUGS (12)
  1. EXJADE [Suspect]
     Active Substance: DEFERASIROX
     Dosage: 20 MG/KG, QD (500 MG THREE TABLETS)
     Route: 048
     Dates: start: 201312
  2. EXJADE [Suspect]
     Active Substance: DEFERASIROX
     Dosage: 20 MG/KG, QD (3 DF OF 500 MG)
     Route: 048
  3. EXJADE [Suspect]
     Active Substance: DEFERASIROX
     Dosage: 5 MG/KG, QD (250 MG)
     Route: 048
     Dates: start: 20140508, end: 20140612
  4. EXJADE [Suspect]
     Active Substance: DEFERASIROX
     Dosage: 1 DF 500 MG TABLET ONE DAY AND 1 DF 750 MG TABLET OTHER DAY
     Route: 065
  5. EXJADE [Suspect]
     Active Substance: DEFERASIROX
     Dosage: 10 MG/KG, QD (1 DF: 500 MG)
     Route: 048
  6. EXJADE [Suspect]
     Active Substance: DEFERASIROX
     Indication: THALASSAEMIA
     Dosage: 10 MG/KG, QD (500 MG)
     Route: 048
     Dates: start: 201304
  7. EXJADE [Suspect]
     Active Substance: DEFERASIROX
     Dosage: 20 MG/KG, QD (2 DF OF 500MG AND 1 DF OF 250MG NOV 2013)
     Route: 048
  8. EXJADE [Suspect]
     Active Substance: DEFERASIROX
     Dosage: 20 MG/KG, QD (1500 MG)
     Route: 048
     Dates: start: 201310, end: 201311
  9. EXJADE [Suspect]
     Active Substance: DEFERASIROX
     Dosage: 15 MG/KG, QD (1000 MG)
     Route: 048
     Dates: start: 201311
  10. EXJADE [Suspect]
     Active Substance: DEFERASIROX
     Dosage: 10 MG/KG, QD (500 MG)
     Route: 048
     Dates: start: 20140613
  11. EXJADE [Suspect]
     Active Substance: DEFERASIROX
     Dosage: 10 MG/KG, QD (1 DF: 500 MG WITH PLUS 1 DF 250 MG TABLET)
     Route: 048
  12. EXJADE [Suspect]
     Active Substance: DEFERASIROX
     Dosage: 10 MG/KG, QD (500 MG)
     Route: 048
     Dates: start: 201310

REACTIONS (13)
  - Blood creatinine increased [Recovered/Resolved]
  - Vomiting [Unknown]
  - Pallor [Recovered/Resolved]
  - Abdominal pain [Recovered/Resolved]
  - Back pain [Recovered/Resolved]
  - Memory impairment [Recovered/Resolved]
  - Blood creatinine increased [Recovered/Resolved]
  - Drug intolerance [Unknown]
  - Malaise [Not Recovered/Not Resolved]
  - Confusional state [Recovered/Resolved]
  - Blood urea increased [Recovering/Resolving]
  - Vomiting [Recovered/Resolved]
  - Serum ferritin increased [Not Recovered/Not Resolved]

NARRATIVE: CASE EVENT DATE: 201311
